FAERS Safety Report 11889333 (Version 1)
Quarter: 2016Q1

REPORT INFORMATION
  Report Type: Spontaneous
  Country: US (occurrence: US)
  Receive Date: 20160105
  Receipt Date: 20160105
  Transmission Date: 20160526
  Serious: No
  Sender: FDA-Public Use
  Company Number: US-BAYER-2016-001647

PATIENT
  Sex: Male

DRUGS (1)
  1. MIRALAX [Suspect]
     Active Substance: POLYETHYLENE GLYCOL 3350
     Indication: COLONY STIMULATING FACTOR PROPHYLAXIS
     Dosage: 3 TBSP
     Dates: start: 20160103, end: 20160103

REACTIONS (4)
  - Abdominal discomfort [None]
  - Abdominal pain [None]
  - Product use issue [None]
  - Diarrhoea [None]

NARRATIVE: CASE EVENT DATE: 20160104
